FAERS Safety Report 8503054-6 (Version None)
Quarter: 2012Q3

REPORT INFORMATION
  Report Type: 
  Country: None (occurrence: None)
  Receive Date: 20120711
  Receipt Date: 20120629
  Transmission Date: 20120928
  Serious: Yes (Hospitalization)
  Sender: FDA-Public Use
  Company Number: US-ELI_LILLY_AND_COMPANY-US201201007820

PATIENT
  Sex: Female

DRUGS (24)
  1. OYSTER SHELL CALCIUM [Concomitant]
  2. FORTEO [Suspect]
     Dosage: 20 UG, QD
     Dates: start: 20120202
  3. FORTEO [Suspect]
     Dosage: 20 UG, QD
  4. ASPIRIN [Concomitant]
     Dosage: UNK, QD
  5. TYLENOL (CAPLET) [Concomitant]
     Indication: PAIN
     Dosage: UNK, PRN
  6. FORTEO [Suspect]
     Indication: OSTEOPOROSIS
     Dosage: 20 UG, QD
     Dates: start: 20120101, end: 20120115
  7. LASIX [Concomitant]
  8. SIMVASTATIN [Concomitant]
     Dosage: 40 MG, EACH EVENING
  9. VITAMIN D [Concomitant]
     Dosage: 1200 IU, QD
  10. LAXATIVES [Concomitant]
  11. CLONIDINE [Concomitant]
     Dosage: UNK, EACH EVENING
  12. IBUPROFEN [Concomitant]
     Indication: PAIN
     Dosage: UNK, PRN
  13. CALCIUM [Concomitant]
     Dosage: 1200 MG, QD
  14. CLOBETASOL PROPIONATE [Concomitant]
     Indication: PSORIASIS
     Route: 061
  15. STOOL SOFTENER [Concomitant]
     Dosage: UNK, PRN
  16. AMLODIPINE [Concomitant]
     Dosage: 2.5 MG, UNK
  17. TRAMADOL HCL [Concomitant]
     Indication: PAIN
     Dosage: 50 MG, PRN
  18. MULTI-VITAMINS [Concomitant]
  19. CLONIDINE [Concomitant]
     Dosage: UNK, TID
  20. NORVASC [Concomitant]
     Dosage: 2.5 MG, QD
  21. COZAAR [Concomitant]
  22. COREG [Concomitant]
  23. LISINOPRIL AND HYDROCHLOROTHIAZIDE [Concomitant]
     Dosage: 45 MG, QD
  24. ASPIRIN [Concomitant]
     Dosage: 81 MG, UNK

REACTIONS (5)
  - URINARY TRACT INFECTION [None]
  - CARDIAC FAILURE CONGESTIVE [None]
  - PNEUMONIA [None]
  - FATIGUE [None]
  - ATRIAL FIBRILLATION [None]
